FAERS Safety Report 24026901 (Version 2)
Quarter: 2024Q3

REPORT INFORMATION
  Report Type: Report from Study
  Country: IN (occurrence: IN)
  Receive Date: 20240628
  Receipt Date: 20240917
  Transmission Date: 20241016
  Serious: Yes (Hospitalization, Other)
  Sender: ROCHE
  Company Number: IN-ROCHE-3566123

PATIENT
  Age: 59 Year
  Sex: Female

DRUGS (1)
  1. ALECENSA [Suspect]
     Active Substance: ALECTINIB HYDROCHLORIDE
     Indication: Lung cancer metastatic
     Route: 048

REACTIONS (7)
  - Oropharyngeal discomfort [Unknown]
  - Dyspnoea [Unknown]
  - Cough [Unknown]
  - Influenza [Unknown]
  - Osteomyelitis [Unknown]
  - General physical health deterioration [Unknown]
  - Asthenia [Unknown]
